FAERS Safety Report 12331844 (Version 1)
Quarter: 2016Q2

REPORT INFORMATION
  Report Type: Spontaneous
  Country: US (occurrence: US)
  Receive Date: 20160504
  Receipt Date: 20160504
  Transmission Date: 20160815
  Serious: No
  Sender: FDA-Public Use
  Company Number: US-ROCHE-1639597

PATIENT
  Sex: Female
  Weight: 77.18 kg

DRUGS (1)
  1. ESBRIET [Suspect]
     Active Substance: PIRFENIDONE
     Indication: IDIOPATHIC PULMONARY FIBROSIS
     Dosage: TAKE 3 CAPSULES BY MOUTH THREE TIMES A DAY WITH FOOD.
     Route: 048
     Dates: start: 20150910

REACTIONS (7)
  - Cough [Unknown]
  - Headache [Unknown]
  - Diarrhoea [Unknown]
  - Nasopharyngitis [Unknown]
  - Chills [Unknown]
  - Insomnia [Unknown]
  - Dyspepsia [Unknown]
